FAERS Safety Report 5637662-7 (Version None)
Quarter: 2008Q1

REPORT INFORMATION
  Report Type: 
  Country: None (occurrence: None)
  Receive Date: 20080219
  Receipt Date: 20080204
  Transmission Date: 20080703
  Serious: Yes (Death)
  Sender: FDA-Public Use
  Company Number: 2008-01256

PATIENT
  Age: 71 Year
  Sex: Female

DRUGS (7)
  1. CLONIDINE [Suspect]
  2. LISINOPRIL [Suspect]
  3. CARVEDILOL [Suspect]
  4. FAMOTIDINE [Suspect]
  5. CARDIAC GLYCOSIDES() [Suspect]
  6. CALCIUM ANTAGONIST() [Suspect]
  7. ATORVASTATIN CALCIUM [Suspect]

REACTIONS (1)
  - DEATH [None]
